FAERS Safety Report 24992119 (Version 5)
Quarter: 2025Q2

REPORT INFORMATION
  Report Type: Other
  Country: DE (occurrence: None)
  Receive Date: 20250220
  Receipt Date: 20250422
  Transmission Date: 20250716
  Serious: Yes (Hospitalization)
  Sender: INCYTE
  Company Number: DE-002147023-NVSC2025DE027225

PATIENT

DRUGS (6)
  1. RUXOLITINIB [Suspect]
     Active Substance: RUXOLITINIB
     Indication: Polycythaemia vera
     Route: 065
  2. RUXOLITINIB [Suspect]
     Active Substance: RUXOLITINIB
     Route: 065
  3. METHOTREXATE [Suspect]
     Active Substance: METHOTREXATE
     Indication: Joint swelling
     Route: 065
  4. DULOXETINE [Concomitant]
     Active Substance: DULOXETINE
     Indication: Depression
     Route: 065
  5. DULOXETINE [Concomitant]
     Active Substance: DULOXETINE
     Route: 065
  6. BEMPEDOIC ACID [Concomitant]
     Active Substance: BEMPEDOIC ACID
     Indication: Dyslipidaemia
     Route: 065

REACTIONS (7)
  - Dyslipidaemia [Unknown]
  - Joint swelling [Recovered/Resolved]
  - Rheumatoid factor increased [Recovered/Resolved]
  - Peripheral swelling [Recovered/Resolved]
  - Dermatitis [Unknown]
  - Skin ulcer [Recovered/Resolved]
  - Skin ulcer [Recovered/Resolved]
